FAERS Safety Report 13365762 (Version 1)
Quarter: 2017Q1

REPORT INFORMATION
  Report Type: Other
  Country: US (occurrence: US)
  Receive Date: 20170323
  Receipt Date: 20170323
  Transmission Date: 20170429
  Serious: Yes (Hospitalization, Other)
  Sender: FDA-Public Use
  Company Number: US-SHIRE-US201706549

PATIENT
  Age: 75 Year
  Sex: Female

DRUGS (1)
  1. NATPARA (PARATHYROID HORMONE) [Suspect]
     Active Substance: PARATHYROID HORMONE
     Indication: HYPOPARATHYROIDISM
     Dosage: 75 ?G, UNKNOWN
     Route: 058
     Dates: start: 20150802

REACTIONS (3)
  - Pneumonia [Recovered/Resolved]
  - Drug dose omission [Recovered/Resolved]
  - Blood calcium decreased [Recovered/Resolved]

NARRATIVE: CASE EVENT DATE: 20170301
